FAERS Safety Report 5240415-5 (Version None)
Quarter: 2007Q1

REPORT INFORMATION
  Report Type: 
  Country: None (occurrence: None)
  Receive Date: 20061208
  Receipt Date: 20060223
  Transmission Date: 20070707
  Serious: Yes (Other)
  Sender: FDA-Public Use
  Company Number: 2006UW05158

PATIENT
  Age: 63 Year
  Sex: Female
  Weight: 97 kg

DRUGS (7)
  1. CRESTOR [Suspect]
     Indication: BLOOD CHOLESTEROL INCREASED
     Dosage: 10 MG DAILY PO
     Route: 048
     Dates: start: 20040501, end: 20051201
  2. PLAVIX [Concomitant]
  3. MAVIK [Concomitant]
  4. INDAPAMIDE [Concomitant]
  5. POTASSIUM ACETATE [Concomitant]
  6. CALCIUM [Concomitant]
  7. VITAMIN D [Concomitant]

REACTIONS (1)
  - ALOPECIA [None]
